FAERS Safety Report 12937655 (Version 6)
Quarter: 2018Q4

REPORT INFORMATION
  Report Type: Spontaneous
  Country: JP (occurrence: JP)
  Receive Date: 20161114
  Receipt Date: 20181207
  Transmission Date: 20190204
  Serious: Yes (Hospitalization)
  Sender: FDA-Public Use
  Company Number: JP-OTSUKA-2016_026262AA

PATIENT
  Age: 43 Year
  Sex: Male

DRUGS (3)
  1. SAMSCA [Suspect]
     Active Substance: TOLVAPTAN
     Indication: CONGENITAL CYSTIC KIDNEY DISEASE
     Dosage: 3.75MG/DAY, FREQUENCY UNKNOWN
     Route: 048
     Dates: start: 20170408, end: 20170630
  2. SAMSCA 30 MG [Suspect]
     Active Substance: TOLVAPTAN
     Dosage: 30MG, DAILY DOSE,FREQUENCY UNKNOWN
     Route: 048
     Dates: start: 20161022, end: 20170118
  3. SAMSCA 30 MG [Suspect]
     Active Substance: TOLVAPTAN
     Indication: CONGENITAL CYSTIC KIDNEY DISEASE
     Dosage: 60 MG, DAILY DOSE,FREQUENCY UNKNOWN
     Route: 048
     Dates: start: 20160720, end: 20161021

REACTIONS (2)
  - Hepatic function abnormal [Recovered/Resolved]
  - Hepatic function abnormal [Recovered/Resolved]

NARRATIVE: CASE EVENT DATE: 20161021
